FAERS Safety Report 25623219 (Version 2)
Quarter: 2025Q3

REPORT INFORMATION
  Report Type: Spontaneous
  Country: EU (occurrence: EU)
  Receive Date: 20250730
  Receipt Date: 20250903
  Transmission Date: 20251020
  Serious: No
  Sender: PFIZER
  Company Number: EU-PFIZER INC-202500150830

PATIENT
  Age: 35 Year
  Sex: Female

DRUGS (1)
  1. DALTEPARIN SODIUM [Suspect]
     Active Substance: DALTEPARIN SODIUM

REACTIONS (4)
  - Injection site discomfort [Unknown]
  - Injection site paraesthesia [Unknown]
  - Poor quality device used [Unknown]
  - Needle issue [Unknown]
